FAERS Safety Report 18066758 (Version 2)
Quarter: 2020Q3

REPORT INFORMATION
  Report Type: Spontaneous
  Country: US (occurrence: US)
  Receive Date: 20200724
  Receipt Date: 20200727
  Transmission Date: 20201103
  Serious: No
  Sender: FDA-Public Use
  Company Number: US-PFIZER INC-2020280798

PATIENT
  Age: 67 Year
  Sex: Female

DRUGS (1)
  1. IBRANCE [Suspect]
     Active Substance: PALBOCICLIB
     Indication: BREAST CANCER METASTATIC
     Dosage: 100 MG, CYCLIC (100 MG EACH DAY; 21 DAYS ON AND 7 DAYS OFF)
     Route: 048
     Dates: start: 20200720

REACTIONS (3)
  - Vomiting [Unknown]
  - Oesophageal pain [Unknown]
  - Cough [Unknown]

NARRATIVE: CASE EVENT DATE: 20200721
